FAERS Safety Report 15886129 (Version 1)
Quarter: 2019Q1

REPORT INFORMATION
  Report Type: Spontaneous
  Country: US (occurrence: US)
  Receive Date: 20190129
  Receipt Date: 20190129
  Transmission Date: 20190417
  Serious: Yes (Other)
  Sender: FDA-Public Use
  Company Number: US-PFIZER INC-2019042715

PATIENT
  Age: 78 Year
  Sex: Female

DRUGS (1)
  1. SUTENT [Suspect]
     Active Substance: SUNITINIB MALATE
     Indication: PANCREATIC NEUROENDOCRINE TUMOUR
     Dosage: 25 MG, UNK

REACTIONS (6)
  - Dizziness [Unknown]
  - Essential hypertension [Unknown]
  - Carcinoid syndrome [Unknown]
  - Wheezing [Unknown]
  - Flushing [Unknown]
  - Iron deficiency [Unknown]
